FAERS Safety Report 8503929-8 (Version None)
Quarter: 2012Q3

REPORT INFORMATION
  Report Type: 
  Country: None (occurrence: None)
  Receive Date: 20120711
  Receipt Date: 20120711
  Transmission Date: 20120928
  Serious: Yes (Hospitalization, Other)
  Sender: FDA-Public Use
  Company Number: JP-BRISTOL-MYERS SQUIBB COMPANY-15535727

PATIENT
  Age: 74 Year
  Sex: Female
  Weight: 50 kg

DRUGS (15)
  1. PREDNISOLONE [Concomitant]
     Dosage: INTRP ON18JAN11,RESTR ON 19JAN11-ONG 3MG
  2. PLAVIX [Concomitant]
  3. ASPARA [Concomitant]
  4. TACROLIMUS [Concomitant]
  5. CELECOXIB [Concomitant]
     Indication: RHEUMATOID ARTHRITIS
  6. ASPIRIN [Concomitant]
  7. ALENDRONATE SODIUM [Concomitant]
  8. GLIMICRON [Concomitant]
  9. HUMALOG [Concomitant]
  10. ORENCIA [Suspect]
     Indication: RHEUMATOID ARTHRITIS
     Dosage: 2ND INFUSION ON 5JAN11,22FEB11,23MAR11,NO INF:4
     Route: 041
     Dates: start: 20101222
  11. SULFASALAZINE [Concomitant]
  12. ALFAROL [Concomitant]
  13. BREDININ [Concomitant]
  14. METHOTREXATE [Concomitant]
  15. PREDNISOLONE [Concomitant]
     Dosage: INTRP ON18JAN11,RESTR ON 19JAN11

REACTIONS (1)
  - CEREBRAL INFARCTION [None]
